FAERS Safety Report 6417479-6 (Version None)
Quarter: 2009Q4

REPORT INFORMATION
  Report Type: 
  Country: None (occurrence: None)
  Receive Date: 20091027
  Receipt Date: 20091027
  Transmission Date: 20100525
  Serious: Yes (Other)
  Sender: FDA-Public Use
  Company Number: None

PATIENT
  Sex: Female
  Weight: 86.1834 kg

DRUGS (1)
  1. MIRAPEX [Suspect]
     Indication: RESTLESS LEGS SYNDROME
     Dosage: 0.25MG 1 TAB 1HR HS
     Dates: start: 20080708, end: 20090515

REACTIONS (2)
  - COMPULSIONS [None]
  - PATHOLOGICAL GAMBLING [None]
